FAERS Safety Report 4623013-3 (Version None)
Quarter: 2005Q1

REPORT INFORMATION
  Report Type: 
  Country: None (occurrence: None)
  Receive Date: 20050329
  Receipt Date: 20050314
  Transmission Date: 20050727
  Serious: Yes (Hospitalization)
  Sender: FDA-Public Use
  Company Number: 2005-BP-04713YA

PATIENT
  Age: 59 Year
  Sex: Male

DRUGS (2)
  1. OMNIC CAPSULES (TAMSULOSIN) (NR) [Suspect]
     Indication: BENIGN PROSTATIC HYPERPLASIA
     Dosage: 0.4 MG PO
     Route: 048
     Dates: start: 20050201, end: 20050308
  2. KARVEZIDE (KARVEA HCT) (NR) [Concomitant]

REACTIONS (6)
  - CONTUSION [None]
  - FALL [None]
  - LOSS OF CONSCIOUSNESS [None]
  - ORTHOSTATIC HYPOTENSION [None]
  - SKIN INJURY [None]
  - SYNCOPE [None]
